FAERS Safety Report 22077316 (Version 2)
Quarter: 2023Q1

REPORT INFORMATION
  Report Type: Spontaneous
  Country: QA (occurrence: None)
  Receive Date: 20230309
  Receipt Date: 20230316
  Transmission Date: 20230418
  Serious: Yes (Life-Threatening, Hospitalization, Other)
  Sender: FDA-Public Use
  Company Number: QA-Hikma Pharmaceuticals USA Inc.-QA-H14001-23-00683

PATIENT
  Age: 2 Year
  Sex: Male

DRUGS (3)
  1. PIPERACILLIN AND TAZOBACTAM [Suspect]
     Active Substance: PIPERACILLIN SODIUM\TAZOBACTAM SODIUM
     Indication: Infective pulmonary exacerbation of cystic fibrosis
     Route: 042
  2. AMIKACIN [Suspect]
     Active Substance: AMIKACIN
     Indication: Infective pulmonary exacerbation of cystic fibrosis
     Route: 042
  3. DIETARY SUPPLEMENT [Concomitant]
     Active Substance: DIETARY SUPPLEMENT
     Indication: Product used for unknown indication
     Dosage: UNKNOWN
     Route: 065

REACTIONS (2)
  - Drug reaction with eosinophilia and systemic symptoms [Recovered/Resolved]
  - Liver disorder [Recovered/Resolved]
